FAERS Safety Report 8886129 (Version 2)
Quarter: 2012Q4

REPORT INFORMATION
  Report Type: Report from Study
  Country: SG (occurrence: SG)
  Receive Date: 20121105
  Receipt Date: 20121108
  Transmission Date: 20130627
  Serious: Yes (Death, Hospitalization, Other)
  Sender: FDA-Public Use
  Company Number: SG-ASTELLAS-2012US010680

PATIENT
  Sex: Male

DRUGS (2)
  1. ERLOTINIB TABLET [Suspect]
     Indication: NON-SMALL CELL LUNG CANCER
     Dosage: 100 mg, UID/QD
     Route: 048
     Dates: start: 20101223, end: 20101229
  2. VINORELBINE [Suspect]
     Indication: NON-SMALL CELL LUNG CANCER
     Dosage: 130 mg, Unknown/D
     Route: 048
     Dates: start: 20101221, end: 20101229

REACTIONS (5)
  - Incorrect dose administered [Unknown]
  - Hyponatraemia [Recovered/Resolved]
  - Antidiuretic hormone abnormality [Unknown]
  - Pneumothorax [Fatal]
  - Malignant neoplasm progression [Unknown]
